FAERS Safety Report 18980903 (Version 1)
Quarter: 2021Q1

REPORT INFORMATION
  Report Type: Report from Study
  Country: US (occurrence: US)
  Receive Date: 20210308
  Receipt Date: 20210308
  Transmission Date: 20210420
  Serious: Yes (Hospitalization)
  Sender: FDA-Public Use
  Company Number: US-BIOGEN-2021BI00985914

PATIENT
  Age: 62 Year
  Sex: Male

DRUGS (1)
  1. TYSABRI [Suspect]
     Active Substance: NATALIZUMAB
     Indication: MULTIPLE SCLEROSIS
     Dosage: INFUSED OVER 1 HOUR
     Route: 042
     Dates: start: 20150223

REACTIONS (18)
  - Rib fracture [Unknown]
  - Anxiety disorder [Unknown]
  - Insomnia [Unknown]
  - Essential hypertension [Unknown]
  - Affect lability [Unknown]
  - Gait disturbance [Unknown]
  - Hepatitis viral [Unknown]
  - Mobility decreased [Unknown]
  - Balance disorder [Unknown]
  - Thyroid disorder [Unknown]
  - Cardiomyopathy [Unknown]
  - Muscular weakness [Unknown]
  - Oxygen saturation decreased [Unknown]
  - Atrial fibrillation [Unknown]
  - Cardiac failure [Unknown]
  - Multiple sclerosis [Unknown]
  - Psychotic disorder [Unknown]
  - Major depression [Unknown]

NARRATIVE: CASE EVENT DATE: 20181030
